FAERS Safety Report 7706275-5 (Version None)
Quarter: 2011Q3

REPORT INFORMATION
  Report Type: 
  Country: None (occurrence: None)
  Receive Date: 20110824
  Receipt Date: 20110818
  Transmission Date: 20111222
  Serious: Yes (Other)
  Sender: FDA-Public Use
  Company Number: BR-ROCHE-796502

PATIENT
  Sex: Female
  Weight: 80 kg

DRUGS (6)
  1. TOCILIZUMAB [Suspect]
     Route: 042
  2. TOCILIZUMAB [Suspect]
     Indication: RHEUMATOID ARTHRITIS
     Route: 042
  3. TOCILIZUMAB [Suspect]
     Dosage: FORM : INFUSION , THIRD INFUSION
     Route: 042
     Dates: start: 20110601
  4. OMEPRAZOLE [Concomitant]
     Indication: DYSPEPSIA
     Route: 048
  5. PREDNISONE [Concomitant]
     Indication: ARTHRITIS
     Route: 048
  6. DICLOFENAC SODIUM [Concomitant]
     Indication: ARTHRITIS
     Route: 048

REACTIONS (4)
  - ILL-DEFINED DISORDER [None]
  - OEDEMA PERIPHERAL [None]
  - SKIN LESION [None]
  - VASCULITIS [None]
